FAERS Safety Report 8757861 (Version 1)
Quarter: 2012Q4

REPORT INFORMATION
  Report Type: 
  Country: US (occurrence: US)
  Receive Date: 20120828
  Receipt Date: 20120828
  Transmission Date: 20130627
  Serious: Yes (Other)
  Sender: FDA-Public Use
  Company Number: US-ROCHE-1108608

PATIENT

DRUGS (10)
  1. HERCEPTIN [Suspect]
     Indication: OSTEOSARCOMA METASTATIC
     Dosage: 4 mg/kg week 1, then 2 mg/kg weekly for a total of 34 doses
  2. DOXORUBICIN/DOXORUBICIN HYDROCHLORIDE [Suspect]
     Indication: OSTEOSARCOMA METASTATIC
     Dosage: for 2 day
     Route: 042
  3. CISPLATIN [Suspect]
     Indication: OSTEOSARCOMA METASTATIC
     Dosage: for 2 day
  4. METHOTREXATE [Suspect]
     Indication: OSTEOSARCOMA METASTATIC
     Dosage: 12 G/M2
  5. CALCIUM FOLINATE [Suspect]
     Indication: OSTEOSARCOMA METASTATIC
     Dosage: 10 doses starting 24 hours after methotrexate
  6. IFOSFAMIDE [Suspect]
     Indication: OSTEOSARCOMA METASTATIC
     Dosage: 2.8 g/m2 for 5 days or 1.8 g/m2
  7. ETOPOSIDE [Suspect]
     Indication: OSTEOSARCOMA METASTATIC
     Dosage: for 5 days
  8. FILGRASTIM [Suspect]
     Indication: OSTEOSARCOMA METASTATIC
     Dosage: given with all courses except methotrexate
  9. MESNA [Concomitant]
     Indication: OSTEOSARCOMA METASTATIC
  10. DEXRAZOXANE [Concomitant]
     Dosage: per dose

REACTIONS (2)
  - Neutropenia [Unknown]
  - Myeloid leukaemia [Unknown]
